FAERS Safety Report 25720892 (Version 5)
Quarter: 2025Q4

REPORT INFORMATION
  Report Type: Spontaneous
  Country: US (occurrence: US)
  Receive Date: 20250825
  Receipt Date: 20251114
  Transmission Date: 20260118
  Serious: Yes (Hospitalization, Other)
  Sender: CATALYST PHARMA
  Company Number: US-CATALYST PHARMACEUTICALS-US-CATA-25-01210

PATIENT
  Age: 20 Year
  Sex: Male
  Weight: 73.6 kg

DRUGS (34)
  1. AGAMREE [Suspect]
     Active Substance: VAMOROLONE
     Indication: Duchenne muscular dystrophy
     Dosage: 7.5 ML ONCE DAILY
     Route: 048
     Dates: start: 20240411
  2. AGAMREE [Suspect]
     Active Substance: VAMOROLONE
     Dosage: TAPERING DOSE: 6.5 ML ONCE A DAY FOR 7 DAYS, THEN DECREASE TO 5.5 ML FOR 7 DAYS, THEN DECREASE 4.5 M
     Route: 048
     Dates: start: 20250912
  3. AGAMREE [Suspect]
     Active Substance: VAMOROLONE
     Dosage: 4.5 ML DAILY
     Route: 048
     Dates: start: 20250927
  4. BENADRYL [Concomitant]
     Active Substance: DIPHENHYDRAMINE HYDROCHLORIDE
     Indication: Hypersensitivity
     Dosage: 50 MG, Q6H, PRN AS NEEDED
     Route: 048
  5. SOLU-CORTEF [Concomitant]
     Active Substance: HYDROCORTISONE SODIUM SUCCINATE
     Indication: Steroid therapy
     Dosage: AS NEEDED (PRN EMERGENCY)
     Route: 030
  6. TOPIRAMATE [Concomitant]
     Active Substance: TOPIRAMATE
     Indication: Seizure
     Dosage: 100 MG = 4 ML TWICE DAILY (DECREASE TO 4.5 ML BID X 1WEEK, THEN 4ML BID THEREAFTER)
     Route: 048
  7. TOPIRAMATE [Concomitant]
     Active Substance: TOPIRAMATE
     Indication: Migraine
     Dosage: 4.5 ML TWICE A DAY
     Route: 048
  8. ALBUTEROL SULFATE [Concomitant]
     Active Substance: ALBUTEROL SULFATE
     Indication: Asthma
     Dosage: ONE VIAL VIA NEBULIZER AS NEEDED (2.5 MG = 3 ML, Q6H, PRN)
     Route: 055
  9. ALBUTEROL SULFATE [Concomitant]
     Active Substance: ALBUTEROL SULFATE
     Indication: Wheezing
  10. ALBUTEROL SULFATE [Concomitant]
     Active Substance: ALBUTEROL SULFATE
     Indication: Cough
  11. ALBUTEROL SULFATE [Concomitant]
     Active Substance: ALBUTEROL SULFATE
     Indication: Asthma
     Dosage: 2 PUFFS, Q4H
     Route: 055
  12. CALCIUM CARBONATE [Concomitant]
     Active Substance: CALCIUM CARBONATE
     Indication: Osteopenia
     Dosage: 1250 MG = 5 ML, QDAY
     Route: 048
  13. GUANFACINE [Concomitant]
     Active Substance: GUANFACINE
     Indication: Insomnia
     Dosage: 0.1 MG ONCE A DAY
     Route: 065
  14. EPIPEN [Concomitant]
     Active Substance: EPINEPHRINE
     Indication: Anaphylactic reaction
     Dosage: 0.3 MG INJECTED ONE TIME ONLY AS NEEDED (ONE INJECTION AS DIRECTED IN OUTER THIGH IMMEDIATLY)
     Route: 030
  15. FAMOTIDINE [Concomitant]
     Active Substance: FAMOTIDINE
     Indication: Gastrooesophageal reflux disease
     Dosage: 20 MG ONCE A DAY
     Route: 048
  16. GABAPENTIN [Concomitant]
     Active Substance: GABAPENTIN
     Indication: Pain in extremity
     Dosage: 100 MG = 2 ML, TID
     Route: 048
  17. HYDROCORTISONE [Concomitant]
     Active Substance: HYDROCORTISONE
     Indication: Duchenne muscular dystrophy
     Dosage: 20 MG (1 TABLET), Q8H
     Route: 048
  18. HYDROCORTISONE [Concomitant]
     Active Substance: HYDROCORTISONE
     Indication: Steroid therapy
  19. HYDROCORTISONE [Concomitant]
     Active Substance: HYDROCORTISONE
     Indication: Pyrexia
     Dosage: 10 ML EVERY 8 HOURS AS NEEDED
     Route: 048
  20. HYDROCORTISONE [Concomitant]
     Active Substance: HYDROCORTISONE
     Indication: Upper respiratory tract infection
  21. HYDROCORTISONE [Concomitant]
     Active Substance: HYDROCORTISONE
     Indication: Nausea
  22. HYDROCORTISONE [Concomitant]
     Active Substance: HYDROCORTISONE
     Indication: Diarrhoea
  23. LISINOPRIL [Concomitant]
     Active Substance: LISINOPRIL
     Indication: Cardiovascular event prophylaxis
     Dosage: 15 MG = 1.5 TABLET IN THE EVENING
     Route: 048
  24. MELATONIN [Concomitant]
     Active Substance: MELATONIN
     Indication: Insomnia
     Dosage: 10 MG ONCE A DAY (QHS)
     Route: 048
  25. VALTOCO [Concomitant]
     Active Substance: DIAZEPAM
     Indication: Seizure
     Dosage: ONE SPRAY IN THE NOSTRIL AS NEEDED (ONCE TIME ONLY)
     Route: 045
  26. VITAMIN D3 [Concomitant]
     Active Substance: CHOLECALCIFEROL
     Indication: Hypovitaminosis
     Dosage: 2000 UNITS (50 MCG) ONCE A DAY
     Route: 048
  27. VITAMIN D3 [Concomitant]
     Active Substance: CHOLECALCIFEROL
     Dosage: 1250 MCG (50,000 INT UNITS) 1 CAPSULE, Q7DAY
     Route: 048
  28. ZOLEDRONIC ACID [Concomitant]
     Active Substance: ZOLEDRONIC ACID
     Indication: Osteopenia
     Dosage: 4 MG/100 ML EVERY SIX MONTHS
     Route: 042
  29. ZOLOFT [Concomitant]
     Active Substance: SERTRALINE HYDROCHLORIDE
     Indication: Obsessive-compulsive disorder
     Dosage: 37.5 MG (1.5 TABLET) ONCE A DAY (EACH MORNING)
     Route: 048
  30. HYDROXYZINE [Concomitant]
     Active Substance: HYDROXYZINE HYDROCHLORIDE
     Indication: Agitation
     Dosage: 25 MG AS NEEDED
     Route: 065
  31. CLONIDINE [Concomitant]
     Active Substance: CLONIDINE
     Indication: Insomnia
     Dosage: 0.1 MG ONCE A DAY (QHS)
     Route: 048
  32. CALCITRIOL [Concomitant]
     Active Substance: CALCITRIOL
     Indication: Product used for unknown indication
     Dosage: 0.5 MCG = 0.5 ML, PO, QDAY, START AFTER IV BISPHOSPHONATE INFUSION FOR 1 WEEK
     Route: 048
  33. ACETAMINOPHEN [Concomitant]
     Active Substance: ACETAMINOPHEN
     Indication: Pain
     Dosage: 650 MG = 2 TABLET, PO, Q6H, PRN
     Route: 048
  34. IBUPROFEN [Concomitant]
     Active Substance: IBUPROFEN
     Indication: Pain
     Dosage: 600 MG = 1 TABLET, Q6H
     Route: 048

REACTIONS (6)
  - Fatigue [Recovering/Resolving]
  - Muscular weakness [Recovering/Resolving]
  - Foot fracture [Not Recovered/Not Resolved]
  - Ligament sprain [Not Recovered/Not Resolved]
  - Fall [Recovered/Resolved]
  - Increased appetite [Recovered/Resolved]

NARRATIVE: CASE EVENT DATE: 20250726
